FAERS Safety Report 14247100 (Version 4)
Quarter: 2018Q1

REPORT INFORMATION
  Report Type: Spontaneous
  Country: JP (occurrence: JP)
  Receive Date: 20171204
  Receipt Date: 20180205
  Transmission Date: 20180508
  Serious: Yes (Hospitalization)
  Sender: FDA-Public Use
  Company Number: PHJP2017JP035011

PATIENT
  Age: 56 Year
  Sex: Female

DRUGS (2)
  1. ZOMETA [Suspect]
     Active Substance: ZOLEDRONIC ACID
     Indication: BREAST CANCER RECURRENT
     Dosage: 3 MG/ML, QMO (ADMINISTRATION SPEED 60 MINUTES)
     Route: 041
     Dates: end: 20171028
  2. AFINITOR [Suspect]
     Active Substance: EVEROLIMUS
     Indication: BREAST CANCER RECURRENT
     Dosage: 10 MG, UNK
     Route: 048
     Dates: start: 20170901

REACTIONS (7)
  - Blood potassium decreased [Unknown]
  - Dehydration [Unknown]
  - Fanconi syndrome acquired [Recovered/Resolved]
  - Hypophosphataemia [Unknown]
  - Glucose urine [Unknown]
  - Urine analysis abnormal [Unknown]
  - Pyrexia [Not Recovered/Not Resolved]

NARRATIVE: CASE EVENT DATE: 20171125
